FAERS Safety Report 8871910 (Version 1)
Quarter: 2012Q4

REPORT INFORMATION
  Report Type: 
  Country: US (occurrence: US)
  Receive Date: 20121023
  Receipt Date: 20121023
  Transmission Date: 20130627
  Serious: Yes (Other)
  Sender: FDA-Public Use
  Company Number: US-ASTELLAS-2011US001096

PATIENT
  Sex: Male
  Weight: 85 kg

DRUGS (14)
  1. PROGRAF [Suspect]
     Indication: RENAL TRANSPLANT
     Dosage: 3 mg in AM and 2 mg in PM
     Route: 048
     Dates: start: 20000421
  2. NEXIUM [Concomitant]
     Indication: GASTROINTESTINAL DISORDER
     Dosage: 40 mg, UID/QD
     Route: 048
     Dates: start: 20000421
  3. NEXIUM [Concomitant]
     Indication: GASTROOESOPHAGEAL REFLUX DISEASE
  4. METOPROLOL [Concomitant]
     Indication: BLOOD PRESSURE
     Dosage: 50 mg, UID/QD
     Route: 048
     Dates: start: 20000421
  5. CERTAGEN [Concomitant]
     Indication: HYPOVITAMINOSIS
     Dosage: 1 DF, UID/QD
     Route: 048
     Dates: start: 20000421
  6. MAGENSIUM PLUS PROTEIN [Concomitant]
     Indication: BLOOD MAGNESIUM DECREASED
     Dosage: 3 DF, tid
     Route: 048
     Dates: start: 20000421
  7. ROBAXIN [Concomitant]
     Indication: MUSCLE SPASMS
     Dosage: 750 mg, bid
     Route: 048
     Dates: start: 201002
  8. COUMADIN [Concomitant]
     Indication: ANTICOAGULANT THERAPY
     Dosage: 2 mg, UID/QD
     Route: 048
     Dates: start: 20000421
  9. PRAVASTATIN [Concomitant]
     Indication: BLOOD CHOLESTEROL INCREASED
     Dosage: 80 mg, UID/QD
     Route: 048
     Dates: start: 20000421
  10. XANAX [Concomitant]
     Indication: SLEEP DISORDER
     Dosage: 1 mg, UID/QD
     Route: 048
     Dates: start: 2008
  11. CELLCEPT [Concomitant]
     Indication: RENAL TRANSPLANT
     Dosage: 500 mg, bid
     Route: 048
     Dates: start: 20000421
  12. SINGULAIR [Concomitant]
     Indication: RESPIRATORY DISORDER
     Dosage: 40 mg, UID/QD
     Route: 048
     Dates: start: 2009
  13. LASIX [Concomitant]
     Indication: FLUID RETENTION
     Dosage: 40 mg, UID/QD
     Route: 048
     Dates: start: 1999
  14. SPAN [Concomitant]
     Indication: PRODUCT USED FOR UNKNOWN INDICATION
     Dosage: 11 g, Unknown/D
     Route: 065

REACTIONS (7)
  - Actinic keratosis [Unknown]
  - Squamous cell carcinoma [Unknown]
  - Basal cell carcinoma [Unknown]
  - Neoplasm malignant [Unknown]
  - Cholecystectomy [Unknown]
  - Seborrhoeic dermatitis [Unknown]
  - Melanocytic naevus [Unknown]
